FAERS Safety Report 5208097-6 (Version None)
Quarter: 2006Q4

REPORT INFORMATION
  Report Type: 
  Country: None (occurrence: None)
  Receive Date: 20061027
  Receipt Date: 20060505
  Transmission Date: 20070319
  Serious: Yes (Hospitalization, Other)
  Sender: FDA-Public Use
  Company Number: AMAN20060004

PATIENT
  Age: 83 Year
  Sex: Female
  Weight: 36.2878 kg

DRUGS (8)
  1. AMANTADINE HCL [Suspect]
     Indication: PARKINSON'S DISEASE
     Dosage: VAR VAR PO
     Route: 048
     Dates: start: 20060401, end: 20060523
  2. SINEMET [Suspect]
     Indication: PARKINSON'S DISEASE
     Dosage: 1 TAB QID-TID PO
     Route: 048
  3. ASPIRIN [Concomitant]
  4. PLETAL (CILOSTAZOL) [Concomitant]
  5. PLAVIX [Concomitant]
  6. HYZAAR (LOSARTAN/HCTZ) [Concomitant]
  7. NORVASC [Concomitant]
  8. DIGOXIN [Concomitant]

REACTIONS (5)
  - CONVULSION [None]
  - DELIRIUM [None]
  - DELUSION [None]
  - HALLUCINATION [None]
  - NIGHTMARE [None]
